FAERS Safety Report 5133276-6 (Version None)
Quarter: 2006Q4

REPORT INFORMATION
  Report Type: 
  Country: None (occurrence: None)
  Receive Date: 20060831
  Receipt Date: 20060720
  Transmission Date: 20070319
  Serious: No
  Sender: FDA-Public Use
  Company Number: 2006-BP-08459BP

PATIENT
  Sex: Female

DRUGS (3)
  1. SPIRIVA [Suspect]
     Indication: CHRONIC OBSTRUCTIVE PULMONARY DISEASE
     Dosage: 18 MG (18 MG,1 IN 1 D),IH
     Dates: start: 20060101
  2. ZYRTEC [Concomitant]
  3. SYNTHROID [Concomitant]

REACTIONS (2)
  - DRY MOUTH [None]
  - LYMPHADENOPATHY [None]
